FAERS Safety Report 11473686 (Version 1)
Quarter: 2015Q3

REPORT INFORMATION
  Report Type: Spontaneous
  Country: US (occurrence: None)
  Receive Date: 20150908
  Receipt Date: 20150908
  Transmission Date: 20151125
  Serious: Yes (Hospitalization)
  Sender: FDA-Public Use
  Company Number: None

PATIENT
  Age: 54 Year
  Sex: Male
  Weight: 120.9 kg

DRUGS (1)
  1. METFORMIN [Suspect]
     Active Substance: METFORMIN HYDROCHLORIDE
     Indication: DIABETES MELLITUS
     Route: 048
     Dates: start: 20070330, end: 20150615

REACTIONS (9)
  - Asthenia [None]
  - Urticaria [None]
  - Loss of consciousness [None]
  - Pruritus [None]
  - Dehydration [None]
  - Blood lactic acid increased [None]
  - Diarrhoea [None]
  - Dizziness [None]
  - Hypovolaemia [None]

NARRATIVE: CASE EVENT DATE: 20150605
